FAERS Safety Report 4632265-5 (Version None)
Quarter: 2005Q2

REPORT INFORMATION
  Report Type: 
  Country: None (occurrence: None)
  Receive Date: 20050331
  Receipt Date: 20040526
  Transmission Date: 20051028
  Serious: Yes (Other)
  Sender: FDA-Public Use
  Company Number: 200412621BCC

PATIENT
  Age: 74 Year
  Sex: Male
  Weight: 87.0906 kg

DRUGS (3)
  1. ALEVE (CAPLET) [Suspect]
     Indication: ARTHRITIS
     Dosage: 220 MG, QD, ORAL
     Route: 048
     Dates: start: 20040520, end: 20040525
  2. 2 OUNCE GLASS OF VODKA (ALCOHOL) [Suspect]
     Dosage: 220 MG, QD, ORAL
     Route: 048
  3. METOPROLOL [Concomitant]

REACTIONS (1)
  - RECTAL HAEMORRHAGE [None]
